FAERS Safety Report 19766182 (Version 1)
Quarter: 2021Q3

REPORT INFORMATION
  Report Type: Spontaneous
  Country: US (occurrence: US)
  Receive Date: 20210830
  Receipt Date: 20210830
  Transmission Date: 20211014
  Serious: Yes (Death, Other)
  Sender: FDA-Public Use
  Company Number: NVSC2021US195776

PATIENT
  Sex: Male

DRUGS (1)
  1. TASIGNA [Suspect]
     Active Substance: NILOTINIB
     Indication: CHRONIC MYELOID LEUKAEMIA
     Dosage: UNK
     Route: 048
     Dates: start: 201003, end: 2015

REACTIONS (10)
  - Emotional distress [Unknown]
  - Deafness [Unknown]
  - Confusional state [Unknown]
  - Cerebrovascular accident [Unknown]
  - Arteriosclerosis [Unknown]
  - Anxiety [Unknown]
  - Blindness [Unknown]
  - Pain [Unknown]
  - Death [Fatal]
  - Injury [Unknown]

NARRATIVE: CASE EVENT DATE: 20180208
